FAERS Safety Report 6249355-6 (Version None)
Quarter: 2009Q2

REPORT INFORMATION
  Report Type: 
  Country: None (occurrence: None)
  Receive Date: 20090629
  Receipt Date: 20090618
  Transmission Date: 20091009
  Serious: Yes (Death, Life-Threatening)
  Sender: FDA-Public Use
  Company Number: ZA-JNJFOC-20090107028

PATIENT
  Age: 38 Year
  Sex: Male

DRUGS (1)
  1. REVELLEX [Suspect]
     Indication: JUVENILE ARTHRITIS
     Dosage: DOSE WAS ^2 AMPULES^
     Route: 042

REACTIONS (1)
  - SEPSIS [None]
